FAERS Safety Report 9177191 (Version 3)
Quarter: 2013Q2

REPORT INFORMATION
  Report Type: Spontaneous
  Country: US (occurrence: US)
  Receive Date: 20130321
  Receipt Date: 20130402
  Transmission Date: 20140414
  Serious: No
  Sender: FDA-Public Use
  Company Number: US-PFIZER INC-2013091404

PATIENT
  Age: 64 Year
  Sex: Female
  Weight: 64 kg

DRUGS (5)
  1. DICLOFENAC SODIUM/MISOPROSTOL [Suspect]
     Indication: ARTHRITIS
     Dosage: 75/0.2 MG 2 TIMES A DAY
  2. ALEVE [Suspect]
     Indication: ARTHRITIS
     Dosage: UNK, 2X/DAY
     Route: 048
     Dates: start: 2011
  3. TRAMADOL [Concomitant]
     Indication: PAIN
     Dosage: UNK
  4. OMEPRAZOLE [Concomitant]
     Indication: GASTROOESOPHAGEAL REFLUX DISEASE
     Dosage: 20 MG, UNK
  5. OMEPRAZOLE [Concomitant]
     Indication: HIATUS HERNIA

REACTIONS (6)
  - Hiatus hernia [Unknown]
  - Intentional drug misuse [Unknown]
  - Body mass index increased [Unknown]
  - Thyroid function test abnormal [Unknown]
  - Protein urine [Unknown]
  - Pulse abnormal [Unknown]
